FAERS Safety Report 9863425 (Version 2)
Quarter: 2014Q1

REPORT INFORMATION
  Report Type: Spontaneous
  Country: US (occurrence: US)
  Receive Date: 20140203
  Receipt Date: 20140327
  Transmission Date: 20141002
  Serious: Yes (Hospitalization, Other)
  Sender: FDA-Public Use
  Company Number: US-TEVA-460179USA

PATIENT
  Age: 63 Year
  Sex: Female
  Weight: 71.4 kg

DRUGS (15)
  1. TREANDA [Suspect]
     Indication: LYMPHOPLASMACYTOID LYMPHOMA/IMMUNOCYTOMA
     Dosage: 3 CYCLES
     Dates: start: 20130609, end: 20130905
  2. TREANDA [Suspect]
     Dates: start: 20130707
  3. TREANDA [Suspect]
     Dates: start: 20130904
  4. RITUXIMAB [Concomitant]
     Dates: start: 20130609
  5. RITUXIMAB [Concomitant]
     Dosage: CYCLE 2
     Dates: start: 20130717
  6. RITUXIMAB [Concomitant]
     Dosage: CYCLE 3
     Dates: start: 20130904
  7. CYMBALTA [Concomitant]
     Indication: DEPRESSION
  8. DEXILANT [Concomitant]
     Indication: GASTROOESOPHAGEAL REFLUX DISEASE
     Dosage: 60 MILLIGRAM DAILY;
  9. ASPIRIN [Concomitant]
     Indication: PROPHYLAXIS
     Dosage: 81 MILLIGRAM DAILY;
     Route: 048
  10. XANAX [Concomitant]
     Indication: ANXIETY
     Dosage: BEDTIME
     Route: 048
  11. ZOFRAN [Concomitant]
     Dosage: 1 TABLET PRN
  12. GABAPENTIN [Concomitant]
     Indication: NEUROPATHY PERIPHERAL
     Route: 048
  13. BUTALBITAL, ACETAMINOPHEN AND CAFFEINE [Concomitant]
     Dosage: 50-325-40 MG 1-2 Q 4 HOURS PRN
     Route: 048
  14. MAXALT [Concomitant]
     Dosage: 10 MILLIGRAM DAILY;
     Route: 048
  15. PROCHLORPERAZINE MALEATE [Concomitant]
     Dosage: 1 TABLET Q 4-6 HOURS FOR 5 DAYS PRN
     Route: 048

REACTIONS (3)
  - Neutropenia [Not Recovered/Not Resolved]
  - Febrile infection [Unknown]
  - Febrile neutropenia [Recovered/Resolved]
